FAERS Safety Report 5367357-9 (Version None)
Quarter: 2007Q2

REPORT INFORMATION
  Report Type: 
  Country: None (occurrence: None)
  Receive Date: 20070622
  Receipt Date: 20060908
  Transmission Date: 20071010
  Serious: No
  Sender: FDA-Public Use
  Company Number: US-ASTRAZENECA-2006UW13936

PATIENT
  Age: 8 Year
  Sex: Male
  Weight: 27.2 kg

DRUGS (5)
  1. PULMICORT [Suspect]
     Indication: ASTHMA
     Route: 055
     Dates: start: 20040101
  2. PULMICORT [Suspect]
     Dosage: 2 PUFFS
     Route: 055
     Dates: start: 20060106
  3. ALBUTEROL [Concomitant]
  4. ALBUTEROL [Concomitant]
  5. CHLOR-TRIMETON [Concomitant]

REACTIONS (5)
  - COUGH [None]
  - DRUG INEFFECTIVE [None]
  - FATIGUE [None]
  - PEAK EXPIRATORY FLOW RATE DECREASED [None]
  - THROAT IRRITATION [None]
